FAERS Safety Report 7287677-0 (Version None)
Quarter: 2011Q1

REPORT INFORMATION
  Report Type: 
  Country: None (occurrence: None)
  Receive Date: 20110211
  Receipt Date: 20110201
  Transmission Date: 20110831
  Serious: Yes (Hospitalization, Other)
  Sender: FDA-Public Use
  Company Number: FR-ELI_LILLY_AND_COMPANY-FR201012004661

PATIENT
  Sex: Female
  Weight: 24 kg

DRUGS (2)
  1. LEVOTHYROX [Concomitant]
     Indication: HYPOTHYROIDISM
     Dosage: 25 UG, DAILY (1/D)
     Route: 048
     Dates: start: 20101101
  2. UMATROPE [Suspect]
     Indication: GROWTH HORMONE DEFICIENCY
     Dosage: 0.035 MG/KG, DAILY (1/D)
     Route: 058
     Dates: start: 20090601

REACTIONS (1)
  - MEDULLOBLASTOMA RECURRENT [None]
